FAERS Safety Report 17278415 (Version 1)
Quarter: 2020Q1

REPORT INFORMATION
  Report Type: Spontaneous
  Country: US (occurrence: US)
  Receive Date: 20200116
  Receipt Date: 20200116
  Transmission Date: 20200409
  Serious: No
  Sender: FDA-Public Use
  Company Number: US-TEVA-2020-US-1167811

PATIENT
  Age: 79 Year
  Sex: Female

DRUGS (1)
  1. METOPROLOL SUCCINATE ER ACTAVIS [Suspect]
     Active Substance: METOPROLOL SUCCINATE
     Indication: BLOOD PRESSURE INCREASED
     Route: 065

REACTIONS (2)
  - Dyspnoea [Unknown]
  - Feeling abnormal [Unknown]
